FAERS Safety Report 6166655-9 (Version None)
Quarter: 2009Q2

REPORT INFORMATION
  Report Type: 
  Country: None (occurrence: None)
  Receive Date: 20090424
  Receipt Date: 20090414
  Transmission Date: 20091009
  Serious: Yes (Other)
  Sender: FDA-Public Use
  Company Number: DE-ELI_LILLY_AND_COMPANY-DE200904003037

PATIENT
  Sex: Female

DRUGS (3)
  1. CYMBALTA [Suspect]
     Dosage: 60 MG, EACH MORNING
     Route: 048
  2. EXELON [Interacting]
     Dosage: 6 MG, SINGLE DOSE
     Route: 065
     Dates: start: 20090411
  3. EBIXA [Interacting]
     Dosage: 10 MG, SINGLE DOSE
     Route: 065
     Dates: start: 20090411

REACTIONS (8)
  - ABDOMINAL DISCOMFORT [None]
  - CONFUSIONAL STATE [None]
  - DIARRHOEA [None]
  - DRUG INTERACTION [None]
  - GENERAL PHYSICAL HEALTH DETERIORATION [None]
  - NAUSEA [None]
  - SYNCOPE [None]
  - VOMITING [None]
